FAERS Safety Report 9269489 (Version 3)
Quarter: 2013Q3

REPORT INFORMATION
  Report Type: Spontaneous
  Country: JP (occurrence: JP)
  Receive Date: 20130503
  Receipt Date: 20130709
  Transmission Date: 20140515
  Serious: Yes (Other)
  Sender: FDA-Public Use
  Company Number: JP-PFIZER INC-2013136840

PATIENT
  Age: 77 Year
  Sex: Female

DRUGS (3)
  1. CELECOX [Suspect]
     Indication: BACK PAIN
     Dosage: 200 MG, DAILY
     Route: 048
     Dates: end: 20130402
  2. PARIET [Suspect]
     Dosage: UNK
     Route: 048
     Dates: end: 20130402
  3. PROMAC [Suspect]
     Dosage: UNK
     Route: 048
     Dates: end: 20130402

REACTIONS (1)
  - Hepatic function abnormal [Recovered/Resolved]
